FAERS Safety Report 4804131-3 (Version None)
Quarter: 2005Q4

REPORT INFORMATION
  Report Type: 
  Country: None (occurrence: None)
  Receive Date: 20051013
  Receipt Date: 20050927
  Transmission Date: 20060501
  Serious: Yes (Hospitalization)
  Sender: FDA-Public Use
  Company Number: AU_050909006

PATIENT
  Age: 48 Year
  Sex: Female

DRUGS (1)
  1. ALIMTA [Suspect]
     Indication: LUNG CANCER METASTATIC
     Dates: start: 20050406

REACTIONS (3)
  - DYSPNOEA [None]
  - OBSTRUCTION [None]
  - THROAT TIGHTNESS [None]
